FAERS Safety Report 9494177 (Version 1)
Quarter: 2013Q3

REPORT INFORMATION
  Report Type: Spontaneous
  Country: US (occurrence: US)
  Receive Date: 20130903
  Receipt Date: 20130903
  Transmission Date: 20140515
  Serious: Yes (Other)
  Sender: FDA-Public Use
  Company Number: US-BAYER-2013-105170

PATIENT
  Sex: Female
  Weight: 74.83 kg

DRUGS (7)
  1. BETASERON [Suspect]
     Dosage: 0.25 MG, QOD
     Route: 058
  2. EFFEXOR [Concomitant]
     Dosage: 25 MG, UNK
  3. PREDNISONE [Concomitant]
     Dosage: 1 MG, UNK
  4. AZITHROMYCIN [Concomitant]
     Dosage: 250 MG, UNK
  5. BACLOFEN [Concomitant]
     Dosage: 10 MG, UNK
  6. BENZONATATE [Concomitant]
     Dosage: 1000 MG, UNK
  7. GINKOBA [Concomitant]
     Dosage: 40 MG, UNK

REACTIONS (2)
  - Bronchitis [Unknown]
  - Exfoliative rash [Unknown]
